FAERS Safety Report 10171014 (Version 2)
Quarter: 2014Q2

REPORT INFORMATION
  Report Type: Spontaneous
  Country: FR (occurrence: FR)
  Receive Date: 20140514
  Receipt Date: 20140530
  Transmission Date: 20141212
  Serious: Yes (Hospitalization)
  Sender: FDA-Public Use
  Company Number: FR-ASTELLAS-2014EU004957

PATIENT
  Sex: Female

DRUGS (2)
  1. PROTOPIC [Suspect]
     Indication: DERMATITIS EXFOLIATIVE
     Dosage: UNK UNK, UNKNOWN FREQ.
     Route: 061
  2. NIVESTIM [Concomitant]
     Indication: NEUTROPENIA
     Dosage: UNK UNK, UNKNOWN FREQ.
     Route: 065

REACTIONS (4)
  - General physical health deterioration [Not Recovered/Not Resolved]
  - Off label use [Unknown]
  - Intentional product misuse [Unknown]
  - Drug prescribing error [Unknown]
